FAERS Safety Report 17146764 (Version 1)
Quarter: 2019Q4

REPORT INFORMATION
  Report Type: Spontaneous
  Country: SE (occurrence: SE)
  Receive Date: 20191212
  Receipt Date: 20191212
  Transmission Date: 20200122
  Serious: Yes (Hospitalization)
  Sender: FDA-Public Use
  Company Number: SE-ACCORD-164803

PATIENT
  Sex: Female

DRUGS (5)
  1. DESLORATADINE. [Suspect]
     Active Substance: DESLORATADINE
     Route: 048
     Dates: start: 20181027, end: 20181027
  2. SERTRALINE [Suspect]
     Active Substance: SERTRALINE HYDROCHLORIDE
     Route: 048
     Dates: start: 20181027, end: 20181027
  3. MELATONIN [Suspect]
     Active Substance: MELATONIN
     Route: 048
     Dates: start: 20181027, end: 20181027
  4. PROPAVAN [Suspect]
     Active Substance: PROPIOMAZINE
     Route: 048
     Dates: start: 20181027, end: 20181027
  5. IMOVANE [Suspect]
     Active Substance: ZOPICLONE
     Route: 048
     Dates: start: 20181027, end: 20181027

REACTIONS (3)
  - Intentional overdose [Unknown]
  - Intentional self-injury [Unknown]
  - Somnolence [Unknown]

NARRATIVE: CASE EVENT DATE: 20181027
